FAERS Safety Report 9019918 (Version 1)
Quarter: 2013Q1

REPORT INFORMATION
  Report Type: Spontaneous
  Country: FR (occurrence: FR)
  Receive Date: 20130118
  Receipt Date: 20130118
  Transmission Date: 20140127
  Serious: Yes (Other)
  Sender: FDA-Public Use
  Company Number: FR-ABBOTT-13P-056-1036543-00

PATIENT
  Age: 48 Year
  Sex: Male

DRUGS (2)
  1. HUMIRA [Suspect]
     Indication: RHEUMATOID ARTHRITIS
  2. METHOTREXATE NOS [Concomitant]
     Indication: RHEUMATOID ARTHRITIS

REACTIONS (3)
  - Loose tooth [Unknown]
  - Hordeolum [Unknown]
  - Furuncle [Unknown]
